FAERS Safety Report 9768531 (Version 1)
Quarter: 2013Q4

REPORT INFORMATION
  Report Type: Spontaneous
  Country: US (occurrence: US)
  Receive Date: 20131217
  Receipt Date: 20131217
  Transmission Date: 20140711
  Serious: Yes (Hospitalization, Other)
  Sender: FDA-Public Use
  Company Number: US-AMGEN-USASP2013088537

PATIENT
  Age: 64 Year
  Sex: Female

DRUGS (1)
  1. ENBREL [Suspect]
     Indication: RHEUMATOID ARTHRITIS
     Dosage: 50 MG, QWK
     Route: 065
     Dates: start: 20100915

REACTIONS (11)
  - Neck pain [Unknown]
  - Mobility decreased [Unknown]
  - Migraine [Unknown]
  - Hypoaesthesia [Unknown]
  - Foot fracture [Unknown]
  - Neurectomy [Recovered/Resolved]
  - Abasia [Not Recovered/Not Resolved]
  - Paraesthesia [Unknown]
  - Procedural pain [Not Recovered/Not Resolved]
  - Injection site haemorrhage [Not Recovered/Not Resolved]
  - Injection site reaction [Unknown]
